FAERS Safety Report 22145589 (Version 1)
Quarter: 2023Q1

REPORT INFORMATION
  Report Type: Report from Study
  Country: US (occurrence: US)
  Receive Date: 20230328
  Receipt Date: 20230328
  Transmission Date: 20230417
  Serious: Yes (Other)
  Sender: FDA-Public Use
  Company Number: US-002147023-NVSC2023US066288

PATIENT
  Sex: Female

DRUGS (1)
  1. PIQRAY [Suspect]
     Active Substance: ALPELISIB
     Indication: Product used for unknown indication
     Dosage: UNK
     Route: 048
     Dates: start: 20230313

REACTIONS (9)
  - Cellulitis [Unknown]
  - Lip blister [Unknown]
  - Vulvovaginal swelling [Unknown]
  - Blood creatinine increased [Unknown]
  - Blood glucose increased [Unknown]
  - Vulvovaginal discomfort [Unknown]
  - Decreased appetite [Unknown]
  - Abdominal pain upper [Unknown]
  - Diarrhoea [Unknown]
